FAERS Safety Report 6739443-X (Version None)
Quarter: 2010Q2

REPORT INFORMATION
  Report Type: 
  Country: None (occurrence: None)
  Receive Date: 20100518
  Receipt Date: 20100316
  Transmission Date: 20101027
  Serious: Yes (Other)
  Sender: FDA-Public Use
  Company Number: WWISSUE-411

PATIENT
  Sex: Female

DRUGS (2)
  1. DOXYCYCLINE HYCLATE [Suspect]
     Indication: DRY SKIN
     Dates: start: 20100301
  2. DOXYCYCLINE HYCLATE [Suspect]
     Indication: ROSACEA
     Dates: start: 20100301

REACTIONS (1)
  - DRUG INEFFECTIVE [None]
